FAERS Safety Report 6575245-5 (Version None)
Quarter: 2010Q1

REPORT INFORMATION
  Report Type: 
  Country: None (occurrence: None)
  Receive Date: 20100209
  Receipt Date: 20100129
  Transmission Date: 20100710
  Serious: Yes (Hospitalization)
  Sender: FDA-Public Use
  Company Number: JP-ROCHE-636980

PATIENT
  Sex: Female
  Weight: 48 kg

DRUGS (14)
  1. TOCILIZUMAB [Suspect]
     Indication: RHEUMATOID ARTHRITIS
     Route: 041
     Dates: start: 20080912, end: 20080912
  2. TOCILIZUMAB [Suspect]
     Route: 041
     Dates: start: 20081010, end: 20081010
  3. TOCILIZUMAB [Suspect]
     Route: 041
     Dates: start: 20081107, end: 20081107
  4. ENBREL [Suspect]
     Indication: RHEUMATOID ARTHRITIS
     Dosage: DOSE FORM: INJECTION.
     Route: 058
     Dates: start: 20090202, end: 20090202
  5. ENBREL [Suspect]
     Dosage: DOSE FORM: INJECTABLE.
     Route: 058
     Dates: start: 20090313, end: 20090313
  6. SALAZOSULFAPYRIDINE [Concomitant]
     Dosage: DRUD: EMINAPYRIN
     Route: 048
     Dates: end: 20090326
  7. ISCOTIN [Concomitant]
     Route: 048
     Dates: end: 20090326
  8. MEDROL [Concomitant]
     Route: 048
     Dates: end: 20081127
  9. PINDOLOL [Concomitant]
     Route: 048
     Dates: end: 20081127
  10. OLMETEC [Concomitant]
     Route: 048
     Dates: end: 20081127
  11. AMLODIPINE [Concomitant]
     Route: 048
     Dates: end: 20090326
  12. ITRACONAZOLE [Concomitant]
     Dosage: DOSE FORM: ORAL FORMULATION NOS
     Route: 048
     Dates: start: 20080926
  13. PREMINENT [Concomitant]
     Route: 048
     Dates: start: 20081128, end: 20090326
  14. FLUITRAN [Concomitant]
     Route: 048
     Dates: end: 20081127

REACTIONS (3)
  - HYPERTENSION [None]
  - MYOCARDIAL INFARCTION [None]
  - ONYCHOMYCOSIS [None]
